FAERS Safety Report 8190248-5 (Version None)
Quarter: 2012Q1

REPORT INFORMATION
  Report Type: 
  Country: None (occurrence: None)
  Receive Date: 20120307
  Receipt Date: 20120228
  Transmission Date: 20120608
  Serious: Yes (Hospitalization, Other)
  Sender: FDA-Public Use
  Company Number: US-BAYER-2012-002738

PATIENT
  Age: 70 Year
  Sex: Female

DRUGS (2)
  1. REQUIP [Concomitant]
     Indication: RESTLESS LEGS SYNDROME
  2. BETASERON [Suspect]
     Indication: MULTIPLE SCLEROSIS
     Dosage: 8 MIU, QOD
     Route: 058
     Dates: start: 20110707, end: 20111121

REACTIONS (3)
  - DIARRHOEA [None]
  - RESTLESS LEGS SYNDROME [None]
  - VOMITING [None]
